FAERS Safety Report 19875840 (Version 2)
Quarter: 2022Q2

REPORT INFORMATION
  Report Type: Spontaneous
  Country: CA (occurrence: CA)
  Receive Date: 20210924
  Receipt Date: 20220428
  Transmission Date: 20220721
  Serious: Yes (Life-Threatening, Hospitalization, Other)
  Sender: FDA-Public Use
  Company Number: CA-SA-SAC20210922001602

PATIENT
  Age: 55 Year
  Sex: Female
  Weight: 69 kg

DRUGS (27)
  1. IRBESARTAN [Suspect]
     Active Substance: IRBESARTAN
     Indication: Hypertension
     Dosage: 1 DF, QD
     Route: 048
  2. ASPIRIN [Suspect]
     Active Substance: ASPIRIN
     Indication: Product used for unknown indication
     Dosage: 80 MG, QD
     Route: 065
  3. AMLODIPINE BESYLATE [Suspect]
     Active Substance: AMLODIPINE BESYLATE
     Indication: Product used for unknown indication
     Dosage: 5 MG, QD
     Route: 048
  4. AMLODIPINE BESYLATE [Suspect]
     Active Substance: AMLODIPINE BESYLATE
  5. SITAGLIPTIN [Suspect]
     Active Substance: SITAGLIPTIN
     Indication: Product used for unknown indication
     Dosage: 100 MG, QD
     Route: 065
  6. METFORMIN HYDROCHLORIDE [Suspect]
     Active Substance: METFORMIN HYDROCHLORIDE
     Indication: Product used for unknown indication
     Dosage: 850 MG, TID
     Route: 048
  7. METFORMIN HYDROCHLORIDE [Suspect]
     Active Substance: METFORMIN HYDROCHLORIDE
  8. METFORMIN HYDROCHLORIDE [Suspect]
     Active Substance: METFORMIN HYDROCHLORIDE
     Dosage: UNK
     Route: 065
  9. IRBESARTAN [Suspect]
     Active Substance: IRBESARTAN
     Indication: Product used for unknown indication
     Dosage: 300 MG, QD
     Route: 048
  10. ESOMEPRAZOLE MAGNESIUM [Suspect]
     Active Substance: ESOMEPRAZOLE MAGNESIUM
     Indication: Product used for unknown indication
     Dosage: 40 MG, QD
     Route: 048
  11. ESOMEPRAZOLE MAGNESIUM [Suspect]
     Active Substance: ESOMEPRAZOLE MAGNESIUM
  12. ALISKIREN [Suspect]
     Active Substance: ALISKIREN
     Indication: Hypertension
     Dosage: 150 MG, QD
     Route: 065
  13. RASILEZ [Suspect]
     Active Substance: ALISKIREN
     Indication: Product used for unknown indication
     Dosage: 150 MG, QD
     Route: 048
  14. RASILEZ [Suspect]
     Active Substance: ALISKIREN
  15. AVAPRO [Concomitant]
     Active Substance: IRBESARTAN
     Dosage: 1 DF
     Route: 065
  16. AVAPRO [Concomitant]
     Active Substance: IRBESARTAN
  17. CYANOCOBALAMIN [Concomitant]
     Active Substance: CYANOCOBALAMIN
     Dosage: 1 DF
     Route: 048
  18. ASPIRIN [Concomitant]
     Active Substance: ASPIRIN
     Dosage: 80 MG
     Route: 065
  19. ASPIRIN [Concomitant]
     Active Substance: ASPIRIN
  20. ESOMEPRAZOLE [Concomitant]
     Active Substance: ESOMEPRAZOLE
     Dosage: 40 MG, QD
     Route: 065
  21. ESOMEPRAZOLE [Concomitant]
     Active Substance: ESOMEPRAZOLE
  22. METFORMIN [Concomitant]
     Active Substance: METFORMIN HYDROCHLORIDE
  23. METFORMIN [Concomitant]
     Active Substance: METFORMIN HYDROCHLORIDE
  24. JANUVIA [Suspect]
     Active Substance: SITAGLIPTIN PHOSPHATE
  25. IRBESARTAN [Suspect]
     Active Substance: IRBESARTAN
  26. CYANOCOBALAMIN [Concomitant]
     Active Substance: CYANOCOBALAMIN
  27. METFORMIN [Concomitant]
     Active Substance: METFORMIN HYDROCHLORIDE

REACTIONS (22)
  - Adjustment disorder [Unknown]
  - Affect lability [Unknown]
  - Anxiety [Unknown]
  - Aphasia [Unknown]
  - Cerebrovascular accident [Unknown]
  - Coordination abnormal [Unknown]
  - Dysarthria [Unknown]
  - Dysphagia [Unknown]
  - Eating disorder [Unknown]
  - Fall [Unknown]
  - Hemiparesis [Unknown]
  - Hemiplegia [Unknown]
  - Motor dysfunction [Unknown]
  - Muscle spasticity [Unknown]
  - Muscular weakness [Unknown]
  - Neurologic neglect syndrome [Unknown]
  - Personality disorder [Unknown]
  - Sensory loss [Unknown]
  - Confusional state [Unknown]
  - Carotid artery thrombosis [Unknown]
  - Asthenia [Unknown]
  - Nausea [Unknown]
